FAERS Safety Report 14110825 (Version 1)
Quarter: 2017Q4

REPORT INFORMATION
  Report Type: Spontaneous
  Country: JP (occurrence: JP)
  Receive Date: 20171020
  Receipt Date: 20171020
  Transmission Date: 20180321
  Serious: Yes (Other)
  Sender: FDA-Public Use
  Company Number: JP-JNJFOC-20171018297

PATIENT
  Age: 69 Year
  Sex: Male

DRUGS (5)
  1. TRAMAL [Suspect]
     Active Substance: TRAMADOL
     Indication: NEURALGIA
     Route: 048
     Dates: start: 20161212
  2. LYRICA [Suspect]
     Active Substance: PREGABALIN
     Indication: NEURALGIA
     Route: 048
  3. LYRICA [Suspect]
     Active Substance: PREGABALIN
     Indication: NEURALGIA
     Route: 048
  4. LYRICA [Suspect]
     Active Substance: PREGABALIN
     Indication: NEURALGIA
     Route: 048
     Dates: start: 201612, end: 201709
  5. TEGRETOL [Concomitant]
     Active Substance: CARBAMAZEPINE
     Route: 065
     Dates: start: 201709, end: 201709

REACTIONS (1)
  - Akathisia [Recovered/Resolved]

NARRATIVE: CASE EVENT DATE: 201709
